FAERS Safety Report 17954156 (Version 2)
Quarter: 2020Q4

REPORT INFORMATION
  Report Type: Report from Study
  Country: None (occurrence: US)
  Receive Date: 20200629
  Receipt Date: 20201223
  Transmission Date: 20210113
  Serious: Yes (Other)
  Sender: FDA-Public Use
  Company Number: US-ABBVIE-20K-163-3459499-00

PATIENT
  Sex: Female

DRUGS (1)
  1. HUMIRA [Suspect]
     Active Substance: ADALIMUMAB
     Indication: RHEUMATOID ARTHRITIS
     Route: 058

REACTIONS (6)
  - Musculoskeletal disorder [Unknown]
  - Diabetes mellitus [Unknown]
  - Cardiac failure [Unknown]
  - Depression [Not Recovered/Not Resolved]
  - Autoimmune disorder [Unknown]
  - Hyperkeratosis [Unknown]
